FAERS Safety Report 13419579 (Version 1)
Quarter: 2017Q2

REPORT INFORMATION
  Report Type: Spontaneous
  Country: US (occurrence: US)
  Receive Date: 20170407
  Receipt Date: 20170407
  Transmission Date: 20170830
  Serious: No
  Sender: FDA-Public Use
  Company Number: US-CELGENEUS-USA-2017039460

PATIENT
  Age: 56 Year
  Sex: Female

DRUGS (1)
  1. OTEZLA [Suspect]
     Active Substance: APREMILAST
     Indication: PRODUCT USED FOR UNKNOWN INDICATION
     Dosage: 60 MILLIGRAM
     Route: 048
     Dates: end: 20170202

REACTIONS (6)
  - Arthralgia [Unknown]
  - Onychomadesis [Unknown]
  - Neck pain [Unknown]
  - Back pain [Unknown]
  - Wound [Unknown]
  - Psoriasis [Unknown]

NARRATIVE: CASE EVENT DATE: 20170202
